FAERS Safety Report 4525961-1 (Version None)
Quarter: 2004Q4

REPORT INFORMATION
  Report Type: 
  Country: None (occurrence: None)
  Receive Date: 20041206
  Receipt Date: 20041115
  Transmission Date: 20050328
  Serious: No
  Sender: FDA-Public Use
  Company Number: WAES  0410USA50152

PATIENT
  Age: 55 Year
  Sex: Male
  Weight: 89.8122 kg

DRUGS (3)
  1. VIOXX [Suspect]
     Indication: NEOPLASM PROPHYLAXIS
     Dosage: 25 MG DAILY PO
     Route: 048
     Dates: start: 20040907, end: 20040930
  2. LISINOPRIL [Concomitant]
  3. VITAMINS (UNSPECIFIED) [Concomitant]

REACTIONS (17)
  - BLOOD CREATINE PHOSPHOKINASE INCREASED [None]
  - CAROTID ARTERY ATHEROMA [None]
  - CONTUSION [None]
  - DIZZINESS [None]
  - FALL [None]
  - GOITRE [None]
  - HEAD INJURY [None]
  - INTERVERTEBRAL DISC DEGENERATION [None]
  - LACERATION [None]
  - LACUNAR INFARCTION [None]
  - LOSS OF CONSCIOUSNESS [None]
  - MEDIASTINAL DISORDER [None]
  - PULMONARY ARTERIAL PRESSURE INCREASED [None]
  - PULMONARY CALCIFICATION [None]
  - SYNCOPE [None]
  - TRICUSPID VALVE INCOMPETENCE [None]
  - VENTRICULAR DYSFUNCTION [None]
